FAERS Safety Report 4446353-X (Version None)
Quarter: 2004Q3

REPORT INFORMATION
  Report Type: 
  Country: None (occurrence: None)
  Receive Date: 20040907
  Receipt Date: 20040823
  Transmission Date: 20050211
  Serious: Yes (Other)
  Sender: FDA-Public Use
  Company Number: 2004058622

PATIENT
  Sex: Female
  Weight: 68.4932 kg

DRUGS (5)
  1. GEODON [Suspect]
     Indication: ILL-DEFINED DISORDER
     Dosage: 60 MG (60 MG, 1 IN 1 D), ORAL
     Route: 048
  2. ZOCOR [Concomitant]
  3. XANAX [Concomitant]
  4. SYNTHROID [Concomitant]
  5. PAXIL (PAROXETINE HYDROHCLORIDE) [Concomitant]

REACTIONS (9)
  - BLOOD CATECHOLAMINES ABNORMAL [None]
  - BREAST CANCER FEMALE [None]
  - GLUCOSE TOLERANCE TEST ABNORMAL [None]
  - HYPOGLYCAEMIA [None]
  - NOREPINEPHRINE INCREASED [None]
  - NORMETANEPHRINE URINE INCREASED [None]
  - PANCREATIC MASS [None]
  - PANIC ATTACK [None]
  - PHAEOCHROMOCYTOMA [None]
